FAERS Safety Report 6037856-5 (Version None)
Quarter: 2009Q1

REPORT INFORMATION
  Report Type: 
  Country: None (occurrence: None)
  Receive Date: 20090113
  Receipt Date: 20090113
  Transmission Date: 20090719
  Serious: Yes (Other)
  Sender: FDA-Public Use
  Company Number: None

PATIENT
  Age: 44 Year
  Sex: Female
  Weight: 81.6475 kg

DRUGS (1)
  1. THYROGEN [Suspect]
     Indication: WHOLE BODY SCAN
     Dosage: ? ONE SHOT IN THIGH DAY ONE IM ? ONE DOSE IN THIGH DAY TWO IM
     Route: 030
     Dates: start: 20051001, end: 20051001

REACTIONS (5)
  - FEAR [None]
  - MALAISE [None]
  - MEDICATION ERROR [None]
  - OFF LABEL USE [None]
  - PROCEDURAL COMPLICATION [None]
